FAERS Safety Report 7826550-3 (Version None)
Quarter: 2011Q4

REPORT INFORMATION
  Report Type: 
  Country: None (occurrence: None)
  Receive Date: 20111020
  Receipt Date: 20111009
  Transmission Date: 20120403
  Serious: Yes (Hospitalization)
  Sender: FDA-Public Use
  Company Number: IL-JNJFOC-20111004399

PATIENT
  Age: 55 Year
  Sex: Male

DRUGS (5)
  1. REMICADE [Suspect]
     Indication: COLITIS
     Route: 042
  2. PLAVIX [Concomitant]
     Route: 065
  3. MERCAPTOPURINE [Concomitant]
     Route: 065
  4. VITAMINS NOS [Concomitant]
     Route: 065
  5. REMICADE [Suspect]
     Indication: CROHN'S DISEASE
     Route: 042

REACTIONS (3)
  - CROHN'S DISEASE [None]
  - LYMPHADENOPATHY [None]
  - ATYPICAL MYCOBACTERIAL PNEUMONIA [None]
